FAERS Safety Report 6398321-9 (Version None)
Quarter: 2009Q4

REPORT INFORMATION
  Report Type: 
  Country: None (occurrence: None)
  Receive Date: 20091013
  Receipt Date: 20091001
  Transmission Date: 20100525
  Serious: Yes (Other)
  Sender: FDA-Public Use
  Company Number: US-PFIZER INC-2009281029

PATIENT
  Sex: Female

DRUGS (1)
  1. GEODON [Suspect]
     Dosage: 40 MG, 1X/DAY
     Route: 048
     Dates: start: 20090101, end: 20090924

REACTIONS (7)
  - AFFECT LABILITY [None]
  - BIPOLAR DISORDER [None]
  - DEPRESSION [None]
  - EMOTIONAL DISTRESS [None]
  - MENTAL STATUS CHANGES [None]
  - SCHIZOPHRENIA [None]
  - SUICIDAL IDEATION [None]
